FAERS Safety Report 5313512-3 (Version None)
Quarter: 2007Q2

REPORT INFORMATION
  Report Type: 
  Country: None (occurrence: None)
  Receive Date: 20070424
  Receipt Date: 20070417
  Transmission Date: 20071010
  Serious: Yes (Life-Threatening)
  Sender: FDA-Public Use
  Company Number: 2007US000847

PATIENT
  Age: 68 Year
  Sex: Female

DRUGS (8)
  1. AMBISOME [Suspect]
     Indication: BRONCHOPULMONARY ASPERGILLOSIS
     Dosage: 125 MG, UID/QD
     Dates: start: 20070309
  2. OLMETEC (OLMESARTAN MEDOXOMIL) [Concomitant]
  3. NORVASC [Concomitant]
  4. BACTRIM [Concomitant]
  5. LANSOPRAZOLE [Concomitant]
  6. HONKUNALIN (TULOBUTEROL HYDROCHLORIDE) [Concomitant]
  7. DIPRIVAN [Concomitant]
  8. SOLU-MEDROL [Concomitant]

REACTIONS (5)
  - HAEMODIALYSIS [None]
  - HEPATIC FAILURE [None]
  - HEPATIC FUNCTION ABNORMAL [None]
  - JAUNDICE [None]
  - PANCYTOPENIA [None]
